FAERS Safety Report 8217323-0 (Version None)
Quarter: 2012Q1

REPORT INFORMATION
  Report Type: 
  Country: None (occurrence: None)
  Receive Date: 20120313
  Receipt Date: 20120229
  Transmission Date: 20120608
  Serious: Yes (Other)
  Sender: FDA-Public Use
  Company Number: NGX_00938_2012

PATIENT
  Sex: Female
  Weight: 68 kg

DRUGS (8)
  1. NEXIUM [Concomitant]
  2. TILIDIN [Concomitant]
  3. QUTENZA [Suspect]
     Indication: POST-THORACOTOMY PAIN SYNDROME
     Dosage: 2 DF, PATCH, THORACIC AREA, TOPICAL
     Route: 061
     Dates: start: 20110708, end: 20110708
  4. QUTENZA [Suspect]
     Indication: NEURALGIA
     Dosage: 2 DF, PATCH, THORACIC AREA, TOPICAL
     Route: 061
     Dates: start: 20110708, end: 20110708
  5. VALORON /00205402/ [Concomitant]
  6. KATADOLON /00890102/ [Concomitant]
  7. IBUPROFEN [Concomitant]
  8. LIDOCAINE [Concomitant]

REACTIONS (6)
  - NEURALGIA [None]
  - CONDITION AGGRAVATED [None]
  - APPLICATION SITE ERYTHEMA [None]
  - DRUG TOLERANCE DECREASED [None]
  - APPLICATION SITE PAIN [None]
  - DRUG INEFFECTIVE [None]
